FAERS Safety Report 8035544-7 (Version None)
Quarter: 2012Q1

REPORT INFORMATION
  Report Type: 
  Country: None (occurrence: None)
  Receive Date: 20120110
  Receipt Date: 20120110
  Transmission Date: 20120608
  Serious: Yes (Other)
  Sender: FDA-Public Use
  Company Number: None

PATIENT
  Age: 56 Year
  Sex: Female
  Weight: 39.9165 kg

DRUGS (4)
  1. FLUCONAZOLE [Concomitant]
  2. PREDNISONE TAB [Concomitant]
  3. MONISTAT VAGINA CREAM [Concomitant]
  4. NYSTATIN [Suspect]
     Indication: VULVOVAGINAL MYCOTIC INFECTION
     Dosage: SM 2 MT FINGERTIP QID TOPICAL
     Route: 061
     Dates: start: 20111116, end: 20111116

REACTIONS (6)
  - ERYTHEMA [None]
  - SWELLING [None]
  - FEELING ABNORMAL [None]
  - SKIN REACTION [None]
  - PRURITUS [None]
  - REACTION TO DRUG EXCIPIENTS [None]
